FAERS Safety Report 25649077 (Version 1)
Quarter: 2025Q3

REPORT INFORMATION
  Report Type: Spontaneous
  Country: US (occurrence: US)
  Receive Date: 20250806
  Receipt Date: 20250806
  Transmission Date: 20251020
  Serious: Yes (Other)
  Sender: PFIZER
  Company Number: US-PFIZER INC-202500156197

PATIENT
  Age: 73 Year
  Sex: Female
  Weight: 63.5 kg

DRUGS (1)
  1. IRINOTECAN HYDROCHLORIDE [Suspect]
     Active Substance: IRINOTECAN HYDROCHLORIDE
     Indication: Chemotherapy

REACTIONS (1)
  - Thrombosis [Unknown]
